FAERS Safety Report 21339314 (Version 2)
Quarter: 2022Q3

REPORT INFORMATION
  Report Type: Report from Study
  Country: US (occurrence: US)
  Receive Date: 20220915
  Receipt Date: 20220930
  Transmission Date: 20221027
  Serious: No
  Sender: FDA-Public Use
  Company Number: US-SA-SAC20220908000649

PATIENT
  Sex: Female

DRUGS (13)
  1. TERIFLUNOMIDE [Suspect]
     Active Substance: TERIFLUNOMIDE
     Indication: Multiple sclerosis
     Dosage: 14 MG, QD
     Route: 048
     Dates: start: 20160917, end: 20171207
  2. TRESIBA [Concomitant]
     Active Substance: INSULIN DEGLUDEC
  3. OZEMPIC [Concomitant]
     Active Substance: SEMAGLUTIDE
  4. NEUPRO [Concomitant]
     Active Substance: ROTIGOTINE
  5. REQUIP [Concomitant]
     Active Substance: ROPINIROLE HYDROCHLORIDE
  6. SINGULAIR [Concomitant]
     Active Substance: MONTELUKAST SODIUM
  7. METFORMIN [Concomitant]
     Active Substance: METFORMIN HYDROCHLORIDE
  8. GABAPENTIN [Concomitant]
     Active Substance: GABAPENTIN
  9. FIASP [Concomitant]
     Active Substance: INSULIN ASPART
  10. FAMOTIDINE [Concomitant]
     Active Substance: FAMOTIDINE
  11. DILTIAZEM [Concomitant]
     Active Substance: DILTIAZEM
  12. ATORVASTATIN [Concomitant]
     Active Substance: ATORVASTATIN
  13. ALBUTEROL [Concomitant]
     Active Substance: ALBUTEROL

REACTIONS (2)
  - COVID-19 [Recovering/Resolving]
  - Feeling abnormal [Recovering/Resolving]
